FAERS Safety Report 21709277 (Version 1)
Quarter: 2022Q4

REPORT INFORMATION
  Report Type: Report from Study
  Country: IR (occurrence: IR)
  Receive Date: 20221210
  Receipt Date: 20221210
  Transmission Date: 20230113
  Serious: Yes (Hospitalization, Other)
  Sender: FDA-Public Use
  Company Number: IR-Accord-290067

PATIENT
  Age: 16 Month

DRUGS (2)
  1. CARBOPLATIN [Suspect]
     Active Substance: CARBOPLATIN
     Indication: Retinoblastoma
     Dosage: TOTAL 2 INJECTION, 16 UG, IN 0.05 ML IN A BALANCED SALT SOLUTION
  2. MELPHALAN [Suspect]
     Active Substance: MELPHALAN
     Indication: Retinoblastoma
     Dosage: TOTAL 2 INJECTION, 30 UG IN 0.03 ML OF DILUENT

REACTIONS (1)
  - Hypotonia [Recovered/Resolved]
